FAERS Safety Report 9332664 (Version 1)
Quarter: 2013Q2

REPORT INFORMATION
  Report Type: Spontaneous
  Country: SE (occurrence: SE)
  Receive Date: 20130606
  Receipt Date: 20130606
  Transmission Date: 20140414
  Serious: Yes (Hospitalization, Other)
  Sender: FDA-Public Use
  Company Number: SE-JNJFOC-20130316361

PATIENT
  Age: 55 Year
  Sex: Female

DRUGS (6)
  1. REMICADE [Suspect]
     Indication: COLITIS ULCERATIVE
     Dosage: 2006-2007
     Route: 042
     Dates: start: 2006, end: 2007
  2. REMICADE [Suspect]
     Indication: COLITIS ULCERATIVE
     Dosage: 1ST INFUSION
     Route: 042
     Dates: start: 20130109, end: 20130119
  3. REMICADE [Suspect]
     Indication: ANKYLOSING SPONDYLITIS
     Dosage: 1ST INFUSION
     Route: 042
     Dates: start: 20130109, end: 20130119
  4. REMICADE [Suspect]
     Indication: ANKYLOSING SPONDYLITIS
     Dosage: 2006-2007
     Route: 042
     Dates: start: 2006, end: 2007
  5. FOLACIN [Concomitant]
     Route: 065
  6. CITODON [Concomitant]
     Route: 065

REACTIONS (2)
  - Urticaria [Recovered/Resolved]
  - Syncope [Unknown]
